FAERS Safety Report 15549660 (Version 7)
Quarter: 2022Q3

REPORT INFORMATION
  Report Type: Spontaneous
  Country: PT (occurrence: PT)
  Receive Date: 20181025
  Receipt Date: 20220810
  Transmission Date: 20221027
  Serious: Yes (Life-Threatening, Hospitalization, Other)
  Sender: FDA-Public Use
  Company Number: PT-MLMSERVICE-20181011-1414962-1

PATIENT
  Age: 73 Year
  Sex: Female

DRUGS (9)
  1. AMOXICILLIN\CLAVULANIC ACID [Suspect]
     Active Substance: AMOXICILLIN\CLAVULANIC ACID
     Indication: Pneumonia
     Dosage: 1 DOSAGE FORM (1 TOTAL), FIRST ADMINISTRATION WAS BY THE INTRAVENOUS ROUTE IN THE EMERGENCY
     Route: 042
  2. INSULIN GLARGINE [Concomitant]
     Active Substance: INSULIN GLARGINE
     Indication: Type 2 diabetes mellitus
     Dosage: 100 U/ML
     Route: 065
  3. OMEPRAZOLE [Concomitant]
     Active Substance: OMEPRAZOLE
     Indication: Product used for unknown indication
     Dosage: 20 MILLIGRAM
     Route: 065
  4. FUROSEMIDE [Concomitant]
     Active Substance: FUROSEMIDE
     Indication: Product used for unknown indication
     Dosage: 20 MILLIGRAM
     Route: 065
  5. ATORVASTATIN [Concomitant]
     Active Substance: ATORVASTATIN
     Indication: Product used for unknown indication
     Dosage: 20 MILLIGRAM
     Route: 065
  6. AMLODIPINE [Concomitant]
     Active Substance: AMLODIPINE BESYLATE
     Indication: Product used for unknown indication
     Dosage: 10 MILLIGRAM
     Route: 065
  7. METFORMIN [Concomitant]
     Active Substance: METFORMIN HYDROCHLORIDE
     Indication: Product used for unknown indication
     Dosage: UNK
     Route: 065
  8. FLUOXETINE [Concomitant]
     Active Substance: FLUOXETINE HYDROCHLORIDE
     Indication: Product used for unknown indication
     Dosage: UNK
     Route: 065
  9. METFORMIN\SITAGLIPTIN [Concomitant]
     Active Substance: METFORMIN\SITAGLIPTIN
     Indication: Product used for unknown indication
     Dosage: UNK
     Route: 065

REACTIONS (16)
  - Anaphylactic shock [Recovering/Resolving]
  - Respiratory arrest [Recovering/Resolving]
  - Kounis syndrome [Recovering/Resolving]
  - Anaphylactic reaction [Recovering/Resolving]
  - Electrocardiogram ST segment elevation [Recovered/Resolved]
  - Cardio-respiratory arrest [Recovering/Resolving]
  - Arteriosclerosis [Recovering/Resolving]
  - Altered state of consciousness [Recovering/Resolving]
  - Shock [Recovering/Resolving]
  - Rash [Recovering/Resolving]
  - Tachycardia [Unknown]
  - Blood creatine phosphokinase increased [Unknown]
  - Tryptase increased [Unknown]
  - Blood creatine phosphokinase MB increased [Unknown]
  - Oxygen saturation decreased [Unknown]
  - Hypotension [Unknown]
